FAERS Safety Report 25644637 (Version 2)
Quarter: 2025Q4

REPORT INFORMATION
  Report Type: Report from Study
  Country: US (occurrence: US)
  Receive Date: 20250805
  Receipt Date: 20251021
  Transmission Date: 20260117
  Serious: Yes (Hospitalization)
  Sender: ALEXION PHARMACEUTICALS
  Company Number: 202405USA001592US

PATIENT
  Age: 63 Year
  Sex: Female

DRUGS (1)
  1. STRENSIQ [Suspect]
     Active Substance: ASFOTASE ALFA
     Indication: Phosphorus metabolism disorder
     Dosage: 80 MILLIGRAM, TIW
     Route: 065

REACTIONS (7)
  - Sepsis [Unknown]
  - Cardiac disorder [Not Recovered/Not Resolved]
  - Abdominal discomfort [Not Recovered/Not Resolved]
  - Lung disorder [Unknown]
  - Weight decreased [Unknown]
  - Malaise [Unknown]
  - Illness [Unknown]
